FAERS Safety Report 6432129-0 (Version None)
Quarter: 2009Q4

REPORT INFORMATION
  Report Type: 
  Country: None (occurrence: None)
  Receive Date: 20091105
  Receipt Date: 20091030
  Transmission Date: 20100525
  Serious: Yes (Death)
  Sender: FDA-Public Use
  Company Number: 2009US003608

PATIENT
  Age: 65 Year
  Sex: Male

DRUGS (3)
  1. PROGRAF [Suspect]
     Indication: RENAL TRANSPLANT
     Dosage: ORAL
     Route: 048
     Dates: start: 20090428
  2. CELLCEPT [Concomitant]
  3. PREDNISONE TAB [Concomitant]

REACTIONS (11)
  - CONSTIPATION [None]
  - DECREASED APPETITE [None]
  - DEEP VEIN THROMBOSIS [None]
  - DISSEMINATED CRYPTOCOCCOSIS [None]
  - DRUG ERUPTION [None]
  - ENTEROCOCCAL BACTERAEMIA [None]
  - MENINGITIS CRYPTOCOCCAL [None]
  - NECROTISING FASCIITIS [None]
  - PANCYTOPENIA [None]
  - RESPIRATORY FAILURE [None]
  - SCROTAL ULCER [None]
